FAERS Safety Report 14920834 (Version 2)
Quarter: 2018Q2

REPORT INFORMATION
  Report Type: Spontaneous
  Country: PT (occurrence: PT)
  Receive Date: 20180521
  Receipt Date: 20180611
  Transmission Date: 20180711
  Serious: Yes (Other)
  Sender: FDA-Public Use
  Company Number: PT-MYLANLABS-2018M1032511

PATIENT
  Age: 26 Year
  Sex: Female
  Weight: 60 kg

DRUGS (9)
  1. THALIDOMIDE CELGENE [Concomitant]
     Active Substance: THALIDOMIDE
     Indication: SYSTEMIC LUPUS ERYTHEMATOSUS
     Dosage: UNK
     Route: 048
  2. CELLCEPT [Suspect]
     Active Substance: MYCOPHENOLATE MOFETIL\MYCOPHENOLATE MOFETIL HYDROCHLORIDE
     Indication: NEUROPSYCHIATRIC LUPUS
     Route: 048
  3. AZATHIOPRINE. [Suspect]
     Active Substance: AZATHIOPRINE
     Indication: SYSTEMIC LUPUS ERYTHEMATOSUS
     Dosage: UNK
     Route: 065
  4. THALIDOMIDE CELGENE [Concomitant]
     Active Substance: THALIDOMIDE
     Indication: CUTANEOUS LUPUS ERYTHEMATOSUS
  5. METHOTREXATE. [Suspect]
     Active Substance: METHOTREXATE
     Indication: CUTANEOUS LUPUS ERYTHEMATOSUS
  6. METHOTREXATE. [Suspect]
     Active Substance: METHOTREXATE
     Indication: SYSTEMIC LUPUS ERYTHEMATOSUS
     Dosage: 15 MG, QW
     Route: 048
     Dates: start: 2004, end: 2006
  7. HYDROXYCHLOROQUINE [Suspect]
     Active Substance: HYDROXYCHLOROQUINE
     Indication: SYSTEMIC LUPUS ERYTHEMATOSUS
     Dosage: UNK
     Route: 065
  8. CYCLOPHOSPHAMIDE. [Suspect]
     Active Substance: CYCLOPHOSPHAMIDE
     Indication: SYSTEMIC LUPUS ERYTHEMATOSUS
     Dosage: UNK
     Route: 065
  9. MABTHERA [Suspect]
     Active Substance: RITUXIMAB
     Indication: SYSTEMIC LUPUS ERYTHEMATOSUS
     Dosage: 1 G
     Route: 042

REACTIONS (6)
  - Listeria sepsis [Unknown]
  - Herpes zoster [Unknown]
  - Lymphopenia [Unknown]
  - Cytomegalovirus infection [Unknown]
  - Progressive multifocal leukoencephalopathy [Recovering/Resolving]
  - Histiocytosis haematophagic [Unknown]

NARRATIVE: CASE EVENT DATE: 2007
